FAERS Safety Report 8008331-3 (Version None)
Quarter: 2011Q4

REPORT INFORMATION
  Report Type: 
  Country: None (occurrence: None)
  Receive Date: 20111227
  Receipt Date: 20111215
  Transmission Date: 20120403
  Serious: Yes (Other)
  Sender: FDA-Public Use
  Company Number: PHHY2011BR104856

PATIENT
  Sex: Female

DRUGS (11)
  1. CLONAZEPAM [Concomitant]
     Indication: SLEEP DISORDER
     Dosage: 0.5 MG, ONCE DAILY
  2. SIMVACOR [Concomitant]
     Indication: BLOOD CHOLESTEROL
     Dosage: 20 MG, ONCE DAILY
  3. COLLYRIUM [Concomitant]
     Indication: CATARACT
  4. EXELON [Suspect]
     Indication: AMNESIA
     Dosage: 1.5 MG, ONE CAPSULE DAILY
     Route: 048
  5. DIOVAN [Concomitant]
     Indication: HYPERTENSION
     Dosage: 320 MG, ONCE DAILY
  6. TICLID [Concomitant]
     Indication: BLOOD DISORDER
     Dosage: 250 MG, ONCE DAILY
  7. SERTRALINE HYDROCHLORIDE [Concomitant]
     Indication: ANXIOLYTIC THERAPY
     Dosage: 50 MG, ONCE DAILY
  8. EXELON [Suspect]
     Dosage: 3 MG, ONE CAPSULE DAILY
     Route: 048
  9. MOTILIUM [Concomitant]
     Indication: DYSPEPSIA
     Dosage: 10 MG, BID
  10. OMEPRAZOLE [Concomitant]
     Indication: ABDOMINAL DISCOMFORT
     Dosage: 25 MG, ONCE DAILY
  11. VITAMIN TAB [Concomitant]
     Indication: ANAEMIA

REACTIONS (5)
  - DYSGRAPHIA [None]
  - GAIT DISTURBANCE [None]
  - PARKINSON'S DISEASE [None]
  - ANAEMIA [None]
  - AMNESIA [None]
